FAERS Safety Report 24624871 (Version 1)
Quarter: 2024Q4

REPORT INFORMATION
  Report Type: Spontaneous
  Country: SE (occurrence: SE)
  Receive Date: 20241115
  Receipt Date: 20241115
  Transmission Date: 20250114
  Serious: Yes (Hospitalization, Other)
  Sender: Vantive US Healthcare
  Company Number: SE-VANTIVE-2024VAN021044

PATIENT

DRUGS (1)
  1. EXTRANEAL [Suspect]
     Active Substance: CALCIUM CHLORIDE\ICODEXTRIN\MAGNESIUM CHLORIDE\SODIUM CHLORIDE\SODIUM LACTATE
     Dosage: 2000 ML (QUANTITY 1) AT NIGHT
     Route: 033

REACTIONS (3)
  - Ultrafiltration failure [Recovered/Resolved]
  - Peritoneal cloudy effluent [Recovered/Resolved]
  - Peritoneal cloudy effluent [Recovered/Resolved]
